FAERS Safety Report 18235335 (Version 1)
Quarter: 2020Q3

REPORT INFORMATION
  Report Type: Spontaneous
  Country: US (occurrence: US)
  Receive Date: 20200905
  Receipt Date: 20200905
  Transmission Date: 20201103
  Serious: Yes (Other)
  Sender: FDA-Public Use
  Company Number: US-AMGEN-USASP2020142199

PATIENT
  Age: 78 Year
  Sex: Male

DRUGS (2)
  1. TALIMOGENE LAHERPAREPVEC [Suspect]
     Active Substance: TALIMOGENE LAHERPAREPVEC
     Indication: METASTATIC MALIGNANT MELANOMA
     Dosage: UNK UNK, CYCLICAL (2 TO 3 ML DOSES, DIVIDED INTO 3 TO 4 LESIONS FOR 14 TREATMENTS)
     Route: 026
  2. TALIMOGENE LAHERPAREPVEC [Suspect]
     Active Substance: TALIMOGENE LAHERPAREPVEC
     Dosage: UNK UNK, CYCLICAL (0.3 TO 1 ML PER CYCLE, OVER A 12 CYCLES)
     Route: 026

REACTIONS (2)
  - Melanoma recurrent [Unknown]
  - Fatigue [Unknown]
